FAERS Safety Report 12892784 (Version 1)
Quarter: 2016Q4

REPORT INFORMATION
  Report Type: Spontaneous
  Country: US (occurrence: US)
  Receive Date: 20161028
  Receipt Date: 20161028
  Transmission Date: 20170207
  Serious: No
  Sender: FDA-Public Use
  Company Number: US-BRACCO-013753

PATIENT
  Age: 85 Year
  Sex: Male

DRUGS (1)
  1. BARIUM SULFATE [Suspect]
     Active Substance: BARIUM SULFATE
     Indication: DIAGNOSTIC PROCEDURE
     Route: 048

REACTIONS (1)
  - Adverse reaction [Not Recovered/Not Resolved]
